FAERS Safety Report 5266860-X (Version None)
Quarter: 2007Q1

REPORT INFORMATION
  Report Type: 
  Country: None (occurrence: None)
  Receive Date: 20061213
  Receipt Date: 20020807
  Transmission Date: 20070707
  Serious: Yes (Hospitalization)
  Sender: FDA-Public Use
  Company Number: 2002UW07400

PATIENT
  Age: 59 Year
  Sex: Female
  Weight: 57.1532 kg

DRUGS (3)
  1. TAMOXIFEN CITRATE [Suspect]
     Indication: BREAST CANCER
     Dosage: 20 MG QD PO
     Route: 048
  2. FOSAMAX [Concomitant]
  3. SYNTHROID [Concomitant]

REACTIONS (1)
  - UTERINE POLYP [None]
